FAERS Safety Report 4918736-2 (Version None)
Quarter: 2006Q1

REPORT INFORMATION
  Report Type: 
  Country: None (occurrence: None)
  Receive Date: 20060216
  Receipt Date: 20060127
  Transmission Date: 20060701
  Serious: Yes (Hospitalization, Other)
  Sender: FDA-Public Use
  Company Number: US200601004986

PATIENT
  Age: 71 Year
  Sex: Female

DRUGS (3)
  1. HUMALOG LISPRO                                 ( LISPRO) [Suspect]
     Indication: DIABETES MELLITUS
     Dates: start: 20020101
  2. BETAPACE [Concomitant]
  3. LANTUS [Concomitant]

REACTIONS (5)
  - ARRHYTHMIA [None]
  - BLOOD GLUCOSE DECREASED [None]
  - LOSS OF CONSCIOUSNESS [None]
  - PHARMACEUTICAL PRODUCT COMPLAINT [None]
  - SHOCK HYPOGLYCAEMIC [None]
